FAERS Safety Report 11323764 (Version 1)
Quarter: 2015Q3

REPORT INFORMATION
  Report Type: Spontaneous
  Country: US (occurrence: None)
  Receive Date: 20150729
  Receipt Date: 20150729
  Transmission Date: 20151125
  Serious: No
  Sender: FDA-Public Use
  Company Number: None

PATIENT
  Sex: Female

DRUGS (3)
  1. IBRANCE [Suspect]
     Active Substance: PALBOCICLIB
     Indication: BREAST CANCER
     Dosage: 100 MG  QD FOR 21 OFF FOR 7  PO
     Route: 048
  2. ETODOLAC. [Concomitant]
     Active Substance: ETODOLAC
  3. LETROZOLE. [Concomitant]
     Active Substance: LETROZOLE

REACTIONS (1)
  - White blood cell count decreased [None]
